FAERS Safety Report 8099156 (Version 3)
Quarter: 2012Q4

REPORT INFORMATION
  Report Type: 
  Country: US (occurrence: US)
  Receive Date: 20110822
  Receipt Date: 20121218
  Transmission Date: 20130627
  Serious: Yes (Other)
  Sender: FDA-Public Use
  Company Number: US-BRISTOL-MYERS SQUIBB COMPANY-15985815

PATIENT
  Age: 47 Year
  Sex: Female

DRUGS (15)
  1. EFFEXOR [Concomitant]
  2. HYDROCHLOROTHIAZIDE [Concomitant]
  3. BUSPIRONE [Concomitant]
  4. LIPITOR [Concomitant]
  5. LOVAZA [Concomitant]
     Indication: CARDIAC DISORDER
  6. OMEPRAZOLE [Concomitant]
  7. PROVENTIL [Concomitant]
  8. SPIRIVA [Concomitant]
  9. BISACODYL [Concomitant]
  10. SPIRONOLACTONE [Concomitant]
  11. FUROSEMIDE [Concomitant]
  12. ATENOLOL [Concomitant]
  13. SEROQUEL [Concomitant]
  14. INVEGA [Concomitant]
  15. ABILIFY [Suspect]
     Indication: BIPOLAR DISORDER
     Dosage: gradually increaswed to 10mg
     Route: 048
     Dates: start: 20080417

REACTIONS (10)
  - Cardiac failure congestive [Unknown]
  - Cough [Unknown]
  - Oedema peripheral [Recovered/Resolved]
  - Dyskinesia [Unknown]
  - Urinary incontinence [Unknown]
  - Weight increased [Unknown]
  - Malaise [Unknown]
  - Speech disorder [Unknown]
  - Arthralgia [Unknown]
  - Swelling [Unknown]
